FAERS Safety Report 8184135 (Version 4)
Quarter: 2014Q2

REPORT INFORMATION
  Report Type: Report from Study
  Country: BR (occurrence: BR)
  Receive Date: 20111017
  Receipt Date: 20140528
  Transmission Date: 20141212
  Serious: Yes (Other)
  Sender: FDA-Public Use
  Company Number: BR-ROCHE-702682

PATIENT
  Age: 54 Year
  Sex: Female
  Weight: 73 kg

DRUGS (17)
  1. RITUXIMAB [Suspect]
     Indication: RHEUMATOID ARTHRITIS
     Dosage: DOSE: 1000 MG/ML; FORM: INFUSION
     Route: 042
     Dates: start: 20081015, end: 20081030
  2. RITUXIMAB [Suspect]
     Dosage: DOSE: 1000 MG/ML
     Route: 042
     Dates: start: 20091124, end: 20091208
  3. RITUXIMAB [Suspect]
     Dosage: DOSE:1000 MG/ML
     Route: 042
     Dates: start: 201010, end: 201010
  4. RITUXIMAB [Suspect]
     Route: 042
     Dates: start: 20091101, end: 20101001
  5. METHOTREXATE [Suspect]
     Indication: RHEUMATOID ARTHRITIS
     Route: 065
  6. HUMIRA [Suspect]
     Indication: PRODUCT USED FOR UNKNOWN INDICATION
     Route: 065
  7. HYDROXYCHLOROQUINE SULFATE [Suspect]
     Indication: PRODUCT USED FOR UNKNOWN INDICATION
     Dosage: REPORTED AS REUQUINOL
     Route: 065
  8. REMICADE [Suspect]
     Indication: RHEUMATOID ARTHRITIS
     Route: 065
  9. DORFLEX [Concomitant]
     Dosage: DORFLEX P
     Route: 065
  10. ADVIL [Concomitant]
  11. ASPIRIN W CAFFEINE [Concomitant]
  12. ENGOV [Concomitant]
  13. PARACETAMOL [Concomitant]
  14. ALLEGRA-D [Concomitant]
     Dosage: DRUG REPORTED AS ALEGRA D
     Route: 065
     Dates: start: 2009, end: 2009
  15. ALLEGRA-D [Concomitant]
     Route: 065
     Dates: start: 20101021, end: 20101025
  16. ACETAMINOPHEN [Concomitant]
     Indication: ANALGESIC THERAPY
     Dosage: FREQUENCY: WHEN NECESSARY
     Route: 065
  17. PANTOPRAZOLE [Concomitant]

REACTIONS (37)
  - Anaphylactic shock [Recovered/Resolved]
  - Cholelithiasis [Recovered/Resolved]
  - Tracheal oedema [Recovered/Resolved]
  - Tooth fracture [Unknown]
  - Pain [Recovered/Resolved]
  - Pain [Not Recovered/Not Resolved]
  - Dry throat [Recovering/Resolving]
  - Skin warm [Recovered/Resolved]
  - Headache [Recovered/Resolved]
  - Erythema [Recovered/Resolved]
  - Swelling face [Recovered/Resolved]
  - Dry mouth [Recovered/Resolved]
  - Pharyngeal oedema [Recovered/Resolved]
  - Tachycardia [Recovered/Resolved]
  - Chest discomfort [Recovered/Resolved]
  - Dyspnoea [Recovered/Resolved]
  - Sensation of foreign body [Recovered/Resolved]
  - Hypersensitivity [Recovering/Resolving]
  - Feeling of body temperature change [Unknown]
  - Blood cholesterol increased [Not Recovered/Not Resolved]
  - Dysphagia [Recovering/Resolving]
  - Bronchitis [Not Recovered/Not Resolved]
  - Nonspecific reaction [Unknown]
  - Malaise [Not Recovered/Not Resolved]
  - Muscular weakness [Not Recovered/Not Resolved]
  - Musculoskeletal stiffness [Not Recovered/Not Resolved]
  - Pain [Not Recovered/Not Resolved]
  - Drug hypersensitivity [Unknown]
  - Headache [Unknown]
  - Gastrointestinal infection [Unknown]
  - Bronchitis chronic [Unknown]
  - Pain [Unknown]
  - Gait disturbance [Unknown]
  - Peripheral swelling [Unknown]
  - Fatigue [Not Recovered/Not Resolved]
  - Pain [Not Recovered/Not Resolved]
  - Fatigue [Not Recovered/Not Resolved]
